FAERS Safety Report 4450542-8 (Version None)
Quarter: 2004Q3

REPORT INFORMATION
  Report Type: 
  Country: None (occurrence: None)
  Receive Date: 20040913
  Receipt Date: 20040628
  Transmission Date: 20050211
  Serious: No
  Sender: FDA-Public Use
  Company Number: 2004-BP-05107BP

PATIENT
  Sex: Female

DRUGS (4)
  1. SPIRIVA [Suspect]
     Indication: CHRONIC OBSTRUCTIVE AIRWAYS DISEASE
     Dosage: 18 MCG (18 MCG), IH
     Route: 055
     Dates: start: 20040621
  2. TOPROL-XL [Concomitant]
  3. ASPIRIN [Concomitant]
  4. LIPITOR [Concomitant]

REACTIONS (4)
  - CONSTIPATION [None]
  - DIZZINESS [None]
  - DRY MOUTH [None]
  - POLLAKIURIA [None]
